FAERS Safety Report 9563938 (Version 2)
Quarter: 2013Q4

REPORT INFORMATION
  Report Type: Report from Study
  Country: BE (occurrence: BE)
  Receive Date: 20130928
  Receipt Date: 20131115
  Transmission Date: 20140711
  Serious: No
  Sender: FDA-Public Use
  Company Number: BE-ROCHE-1281049

PATIENT
  Age: 64 Year
  Sex: Female

DRUGS (7)
  1. PEG-INTERFERON ALFA 2A [Suspect]
     Indication: HEPATITIS C
     Route: 058
     Dates: start: 20130806, end: 20130828
  2. RIBAVIRIN [Suspect]
     Indication: HEPATITIS C
     Route: 048
     Dates: start: 20130806, end: 20130828
  3. TELAPREVIR [Suspect]
     Indication: HEPATITIS C
     Route: 048
     Dates: start: 20130806, end: 20130828
  4. COVERSYL [Concomitant]
     Indication: HYPERTENSION
     Route: 048
     Dates: start: 20101018
  5. INSULIN [Concomitant]
     Indication: DIABETES MELLITUS
     Route: 058
     Dates: start: 20101018
  6. INDAPAMID [Concomitant]
     Indication: HYPERTENSION
     Route: 048
     Dates: start: 20101018
  7. BEFACT [Concomitant]
     Route: 065

REACTIONS (1)
  - Photophobia [Recovered/Resolved]
